FAERS Safety Report 17707879 (Version 1)
Quarter: 2020Q2

REPORT INFORMATION
  Report Type: Report from Study
  Country: US (occurrence: US)
  Receive Date: 20200424
  Receipt Date: 20200424
  Transmission Date: 20200714
  Serious: Yes (Hospitalization)
  Sender: FDA-Public Use
  Company Number: US-ACTELION-A-NJ2020-202491

PATIENT
  Sex: Female
  Weight: 145.13 kg

DRUGS (2)
  1. UPTRAVI [Suspect]
     Active Substance: SELEXIPAG
     Dosage: 1200 MCG, BID
     Route: 048
     Dates: start: 20200210
  2. UPTRAVI [Suspect]
     Active Substance: SELEXIPAG
     Indication: PULMONARY HYPERTENSION
     Dosage: 1000 MCG, BID
     Route: 048

REACTIONS (7)
  - Medical device implantation [Unknown]
  - Renal failure [Unknown]
  - Hypotension [Unknown]
  - Dyspnoea [Unknown]
  - Acute right ventricular failure [Unknown]
  - Fluid retention [Unknown]
  - Dialysis [Unknown]
